FAERS Safety Report 16312386 (Version 5)
Quarter: 2019Q3

REPORT INFORMATION
  Report Type: Spontaneous
  Country: HK (occurrence: HK)
  Receive Date: 20190515
  Receipt Date: 20190909
  Transmission Date: 20191004
  Serious: Yes (Hospitalization, Other)
  Sender: FDA-Public Use
  Company Number: HK-SA-2019SA128211

PATIENT
  Age: 43 Year
  Sex: Male

DRUGS (3)
  1. METHYLPREDNISOLONE. [Concomitant]
     Active Substance: METHYLPREDNISOLONE
     Indication: PREMEDICATION
     Dosage: 1000 MG, QD
     Route: 042
     Dates: start: 201903
  2. LEMTRADA [Suspect]
     Active Substance: ALEMTUZUMAB
     Indication: RELAPSING-REMITTING MULTIPLE SCLEROSIS
     Dosage: 12 MG, QD
     Route: 041
     Dates: start: 201903
  3. ACYCLOVIR [ACICLOVIR] [Concomitant]
     Active Substance: ACYCLOVIR
     Indication: PROPHYLAXIS
     Dosage: 200 MG, BID
     Route: 065
     Dates: start: 201903

REACTIONS (16)
  - Bronchiectasis [Not Recovered/Not Resolved]
  - Rales [Recovered/Resolved]
  - Cough [Recovered/Resolved]
  - Interstitial lung disease [Unknown]
  - White blood cell count abnormal [Unknown]
  - Computerised tomogram abnormal [Recovered/Resolved]
  - Pyrexia [Unknown]
  - Pneumocystis jirovecii pneumonia [Recovered/Resolved]
  - Dyspnoea exertional [Recovered/Resolved]
  - Tachypnoea [Recovered/Resolved]
  - Pulmonary function test abnormal [Recovered/Resolved]
  - Chest X-ray abnormal [Recovered/Resolved]
  - Lymphopenia [Recovering/Resolving]
  - Red blood cell sedimentation rate increased [Recovered/Resolved]
  - Exercise tolerance decreased [Unknown]
  - C-reactive protein increased [Recovered/Resolved]

NARRATIVE: CASE EVENT DATE: 201904
